FAERS Safety Report 8891296 (Version 1)
Quarter: 2012Q4

REPORT INFORMATION
  Report Type: 
  Country: BR (occurrence: BR)
  Receive Date: 20121107
  Receipt Date: 20121107
  Transmission Date: 20130627
  Serious: Yes (Hospitalization)
  Sender: FDA-Public Use
  Company Number: BR-ASTRAZENECA-2012SE83223

PATIENT
  Age: 71 Year
  Sex: Male
  Weight: 87 kg

DRUGS (10)
  1. CRESTOR [Suspect]
     Route: 048
     Dates: start: 2010, end: 201207
  2. CRESTOR [Suspect]
     Dosage: GENERIC
     Route: 065
     Dates: start: 201207
  3. ATENOLOL [Suspect]
     Dosage: GENERIC
     Route: 065
     Dates: start: 2010
  4. PANTOPRAZOLE [Concomitant]
     Dosage: OD
     Route: 048
     Dates: start: 2010
  5. MONOCORDIL [Concomitant]
     Dosage: TID
     Route: 048
     Dates: start: 2010
  6. VASTAREL [Concomitant]
     Dosage: BID
     Route: 048
     Dates: start: 2010
  7. SOMALGIN [Concomitant]
     Dosage: OD
     Route: 048
     Dates: start: 2010
  8. NATRILIX [Concomitant]
     Dosage: OD
     Route: 048
     Dates: start: 2010
  9. LEXAPRO [Concomitant]
     Dosage: BID
     Route: 048
     Dates: start: 2010
  10. ALPRAZOLAM [Concomitant]
     Dosage: OD
     Route: 048
     Dates: start: 2010

REACTIONS (4)
  - Chest pain [Recovered/Resolved]
  - Chest pain [Recovered/Resolved]
  - Weight increased [Unknown]
  - Dyspnoea [Recovered/Resolved]
